FAERS Safety Report 25645755 (Version 2)
Quarter: 2025Q3

REPORT INFORMATION
  Report Type: Spontaneous
  Country: US (occurrence: US)
  Receive Date: 20250805
  Receipt Date: 20250818
  Transmission Date: 20251020
  Serious: Yes (Other)
  Sender: TAKEDA
  Company Number: US-TAKEDA-2025TUS069344

PATIENT
  Sex: Female

DRUGS (2)
  1. ADDERALL XR [Suspect]
     Active Substance: AMPHETAMINE ASPARTATE\AMPHETAMINE SULFATE\DEXTROAMPHETAMINE SACCHARATE\DEXTROAMPHETAMINE SULFATE
     Indication: Product used for unknown indication
  2. DEXTROAMPHETAMINE SACCHARATE, AMPHETAMINE ASPARTATE, DEXTROAMPHETAMINE [Suspect]
     Active Substance: AMPHETAMINE ASPARTATE\AMPHETAMINE SULFATE\DEXTROAMPHETAMINE SACCHARATE\DEXTROAMPHETAMINE SULFATE
     Indication: Product used for unknown indication

REACTIONS (13)
  - Suicidal behaviour [Unknown]
  - Inability to afford medication [Unknown]
  - Insurance issue [Unknown]
  - Malaise [Unknown]
  - Emotional disorder [Unknown]
  - Rash erythematous [Unknown]
  - Panic attack [Unknown]
  - Mental disorder [Unknown]
  - Allergic reaction to excipient [Unknown]
  - Crying [Unknown]
  - Anger [Unknown]
  - Agitation [Unknown]
  - Dyspnoea [Unknown]
